FAERS Safety Report 5238343-4 (Version None)
Quarter: 2007Q1

REPORT INFORMATION
  Report Type: 
  Country: None (occurrence: None)
  Receive Date: 20061208
  Receipt Date: 20050301
  Transmission Date: 20070707
  Serious: Yes (Other)
  Sender: FDA-Public Use
  Company Number: 2005UW03277

PATIENT
  Age: 73 Year
  Sex: Female
  Weight: 63.502 kg

DRUGS (3)
  1. CRESTOR [Suspect]
     Indication: BLOOD CHOLESTEROL INCREASED
     Dosage: 10 MG PO
     Route: 048
     Dates: start: 20050227, end: 20050101
  2. NORVASC [Concomitant]
  3. LISINOPRIL [Concomitant]

REACTIONS (3)
  - DRY MOUTH [None]
  - HOT FLUSH [None]
  - PALPITATIONS [None]
